FAERS Safety Report 13220624 (Version 1)
Quarter: 2017Q1

REPORT INFORMATION
  Report Type: Other
  Country: US (occurrence: US)
  Receive Date: 20170211
  Receipt Date: 20170211
  Transmission Date: 20170428
  Serious: Yes (Hospitalization)
  Sender: FDA-Public Use
  Company Number: US-ACORDA-ACO_128317_2016

PATIENT
  Age: 59 Year
  Sex: Female

DRUGS (2)
  1. FLEXERIL [Suspect]
     Active Substance: CYCLOBENZAPRINE HYDROCHLORIDE
     Indication: SPINAL COLUMN STENOSIS
     Dosage: 5 MG, TID
     Route: 065
  2. AMPYRA [Suspect]
     Active Substance: DALFAMPRIDINE
     Indication: PRODUCT USED FOR UNKNOWN INDICATION
     Dosage: 10 MG, BID
     Route: 048
     Dates: start: 20150319

REACTIONS (7)
  - Mobility decreased [Unknown]
  - Fatigue [Unknown]
  - Gait disturbance [Unknown]
  - Spinal column stenosis [Unknown]
  - Muscle spasms [Unknown]
  - Arthritis [Unknown]
  - Insomnia [Unknown]

NARRATIVE: CASE EVENT DATE: 2016
